FAERS Safety Report 9292484 (Version 1)
Quarter: 2013Q2

REPORT INFORMATION
  Report Type: Spontaneous
  Country: FR (occurrence: FR)
  Receive Date: 20130516
  Receipt Date: 20130516
  Transmission Date: 20140414
  Serious: Yes (Death, Congenital Anomaly)
  Sender: FDA-Public Use
  Company Number: FR-PFIZER INC-2013147406

PATIENT
  Sex: 0

DRUGS (7)
  1. LYRICA [Suspect]
     Dosage: 150 MG, 2X/DAY
     Route: 064
     Dates: end: 20121115
  2. TAHOR [Suspect]
     Dosage: 20 MG DAILY
     Route: 064
     Dates: end: 20121115
  3. REVIA [Suspect]
     Dosage: 50 MG, 1X/DAY
     Route: 064
     Dates: end: 20121115
  4. COAPROVEL [Suspect]
     Dosage: UNK
     Route: 064
     Dates: end: 20121115
  5. LOXEN [Suspect]
     Dosage: UNK
     Route: 064
  6. AOTAL [Suspect]
     Dosage: 1332 MG, 4 DOSAGE FORMS (DF) DAILY
     Route: 064
  7. ALCOHOL [Suspect]
     Dosage: 1 BOTTLE OF VODKA A DAY

REACTIONS (7)
  - Maternal exposure during pregnancy [Fatal]
  - Congenital hand malformation [Fatal]
  - Limb malformation [Fatal]
  - Umbilical hernia [Fatal]
  - Foetal growth restriction [Fatal]
  - Congenital hydrocephalus [Fatal]
  - Foetal alcohol syndrome [Fatal]
